FAERS Safety Report 16744137 (Version 2)
Quarter: 2020Q3

REPORT INFORMATION
  Report Type: Spontaneous
  Country: US (occurrence: US)
  Receive Date: 20190827
  Receipt Date: 20200723
  Transmission Date: 20201102
  Serious: Yes (Hospitalization, Other)
  Sender: FDA-Public Use
  Company Number: US-SUN PHARMACEUTICAL INDUSTRIES LTD-2019R1-216660

PATIENT
  Age: 50 Year
  Sex: Male

DRUGS (1)
  1. DEXMEDETOMIDINE. [Suspect]
     Active Substance: DEXMEDETOMIDINE
     Indication: AGITATION
     Dosage: UNK
     Route: 065

REACTIONS (3)
  - Large intestinal obstruction [Unknown]
  - Perforation [Unknown]
  - Colitis ischaemic [Unknown]
